FAERS Safety Report 7684943-1 (Version None)
Quarter: 2011Q3

REPORT INFORMATION
  Report Type: 
  Country: None (occurrence: None)
  Receive Date: 20110816
  Receipt Date: 20110805
  Transmission Date: 20111222
  Serious: Yes (Hospitalization)
  Sender: FDA-Public Use
  Company Number: PHFR2011IE04648

PATIENT
  Sex: Female

DRUGS (1)
  1. CLOZAPINE [Suspect]
     Indication: SCHIZOPHRENIA
     Dosage: UNK
     Route: 048
     Dates: start: 19970619

REACTIONS (4)
  - LOSS OF CONSCIOUSNESS [None]
  - SYNCOPE [None]
  - HAEMORRHAGE INTRACRANIAL [None]
  - FRACTURE [None]
